FAERS Safety Report 15289740 (Version 1)
Quarter: 2018Q3

REPORT INFORMATION
  Report Type: Report from Study
  Country: None (occurrence: BE)
  Receive Date: 20180817
  Receipt Date: 20180817
  Transmission Date: 20181010
  Serious: Yes (Death)
  Sender: FDA-Public Use
  Company Number: BE-ABBVIE-18S-013-2456065-00

PATIENT
  Age: 90 Year
  Sex: Female

DRUGS (4)
  1. DUODOPA [Suspect]
     Active Substance: CARBIDOPA\LEVODOPA
     Indication: PARKINSON^S DISEASE
     Dosage: CD = 3.8 ML/HR
     Route: 050
     Dates: start: 20121001, end: 20121109
  2. DUODOPA [Suspect]
     Active Substance: CARBIDOPA\LEVODOPA
     Dosage: MD=3ML?CD=3.3ML/HR DURING 16HRS ?ED=2.5ML?ND=3ML/HR DURING 8HRS
     Route: 050
     Dates: start: 20121109, end: 20121113
  3. DUODOPA [Suspect]
     Active Substance: CARBIDOPA\LEVODOPA
     Dosage: MD=3.6ML?CD=3.8ML/HR DURING 16HRS ?ED=2.5ML?ND=3ML/HR DURING 8HRS
     Route: 050
     Dates: start: 20170703
  4. DUODOPA [Suspect]
     Active Substance: CARBIDOPA\LEVODOPA
     Dosage: DOSES CONTINUOUSLY MONITORED AND ADAPTED
     Route: 050
     Dates: start: 20121113, end: 20170703

REACTIONS (1)
  - Death [Fatal]

NARRATIVE: CASE EVENT DATE: 20180814
